FAERS Safety Report 5505380-1 (Version None)
Quarter: 2007Q4

REPORT INFORMATION
  Report Type: 
  Country: None (occurrence: None)
  Receive Date: 20071102
  Receipt Date: 20071022
  Transmission Date: 20080405
  Serious: Yes (Hospitalization)
  Sender: FDA-Public Use
  Company Number: NO-ELI_LILLY_AND_COMPANY-NO200710005446

PATIENT
  Age: 51 Year
  Sex: Male

DRUGS (1)
  1. TADALAFIL [Suspect]
     Dosage: UNK, MONTHLY (1/M)
     Route: 048

REACTIONS (7)
  - CONFUSIONAL STATE [None]
  - DIZZINESS [None]
  - FEELING COLD [None]
  - HYPERHIDROSIS [None]
  - HYPOTENSION [None]
  - LUNG ABSCESS [None]
  - PAIN [None]
